FAERS Safety Report 13119123 (Version 1)
Quarter: 2017Q1

REPORT INFORMATION
  Report Type: Spontaneous
  Country: DE (occurrence: DE)
  Receive Date: 20170116
  Receipt Date: 20170116
  Transmission Date: 20170428
  Serious: Yes (Other)
  Sender: FDA-Public Use
  Company Number: PHHY2017DE004571

PATIENT
  Sex: Female

DRUGS (3)
  1. TEGRETAL [Suspect]
     Active Substance: CARBAMAZEPINE
     Indication: PRODUCT USED FOR UNKNOWN INDICATION
     Dosage: 600 MG, UNK
     Route: 065
     Dates: end: 201608
  2. TEGRETAL [Suspect]
     Active Substance: CARBAMAZEPINE
     Dosage: UNK UNK, QD (400 MG AND 200 MG)
     Route: 065
     Dates: start: 201611
  3. CARBAMAZEPINE. [Suspect]
     Active Substance: CARBAMAZEPINE
     Indication: PRODUCT USED FOR UNKNOWN INDICATION
     Dosage: UNK
     Route: 065
     Dates: start: 201608

REACTIONS (2)
  - Multiple sclerosis relapse [Unknown]
  - Trigeminal neuralgia [Unknown]
